FAERS Safety Report 11286951 (Version 2)
Quarter: 2015Q3

REPORT INFORMATION
  Report Type: Report from Study
  Country: US (occurrence: US)
  Receive Date: 20150721
  Receipt Date: 20150730
  Transmission Date: 20151125
  Serious: Yes (Hospitalization)
  Sender: FDA-Public Use
  Company Number: US-BIOGENIDEC-2015BI099042

PATIENT
  Age: 59 Year
  Sex: Male
  Weight: 77 kg

DRUGS (9)
  1. BACLOFEN. [Concomitant]
     Active Substance: BACLOFEN
  2. MIRABEGRON [Concomitant]
     Active Substance: MIRABEGRON
  3. TECFIDERA [Suspect]
     Active Substance: DIMETHYL FUMARATE
     Indication: MULTIPLE SCLEROSIS
     Route: 048
     Dates: start: 201506
  4. MULTIVITAMIN [Concomitant]
     Active Substance: VITAMINS
  5. ECOTRIN [Concomitant]
     Active Substance: ASPIRIN
  6. MODAFINIL. [Concomitant]
     Active Substance: MODAFINIL
  7. OXYBUTYNIN [Concomitant]
     Active Substance: OXYBUTYNIN
  8. AMPYRA [Concomitant]
     Active Substance: DALFAMPRIDINE
     Route: 048
     Dates: start: 201011
  9. AMPYRA [Concomitant]
     Active Substance: DALFAMPRIDINE

REACTIONS (4)
  - Palpitations [Unknown]
  - Depression [Unknown]
  - Multiple sclerosis relapse [Unknown]
  - Stress [Unknown]

NARRATIVE: CASE EVENT DATE: 20150709
